FAERS Safety Report 13693994 (Version 1)
Quarter: 2017Q2

REPORT INFORMATION
  Report Type: Spontaneous
  Country: US (occurrence: US)
  Receive Date: 20170626
  Receipt Date: 20170626
  Transmission Date: 20170830
  Serious: No
  Sender: FDA-Public Use
  Company Number: None

PATIENT
  Age: 57 Year
  Sex: Female
  Weight: 93.6 kg

DRUGS (1)
  1. DULOXITENE [Suspect]
     Active Substance: DULOXETINE
     Route: 048

REACTIONS (6)
  - Withdrawal syndrome [None]
  - Product substitution issue [None]
  - Fibromyalgia [None]
  - Suicidal ideation [None]
  - Fatigue [None]
  - Panic disorder [None]
